FAERS Safety Report 9121507 (Version 1)
Quarter: 2013Q1

REPORT INFORMATION
  Report Type: Spontaneous
  Country: US (occurrence: US)
  Receive Date: 20130108
  Receipt Date: 20130108
  Transmission Date: 20140127
  Serious: Yes (Other)
  Sender: FDA-Public Use
  Company Number: US-RB-047661-12

PATIENT
  Age: 32 Year
  Sex: Female

DRUGS (2)
  1. MUCINEX D [Suspect]
     Indication: INCREASED UPPER AIRWAY SECRETION
     Dosage: STOPPED ON 05-DEC-2012
     Route: 048
     Dates: start: 20121203
  2. MUCINEX D [Suspect]

REACTIONS (5)
  - Upper respiratory tract infection [Recovered/Resolved]
  - Insomnia [Recovered/Resolved]
  - Hallucination [Recovered/Resolved]
  - Fatigue [Recovered/Resolved]
  - Drug ineffective [Recovered/Resolved]
